FAERS Safety Report 11608145 (Version 2)
Quarter: 2015Q4

REPORT INFORMATION
  Report Type: Spontaneous
  Country: US (occurrence: US)
  Receive Date: 20151007
  Receipt Date: 20151201
  Transmission Date: 20160304
  Serious: No
  Sender: FDA-Public Use
  Company Number: CHPA2015US011835

PATIENT
  Age: 58 Year
  Sex: Male

DRUGS (1)
  1. VOLTAREN [Suspect]
     Active Substance: DICLOFENAC SODIUM
     Indication: PRODUCT USED FOR UNKNOWN INDICATION
     Dosage: 2 G, BID
     Route: 061
     Dates: start: 2012

REACTIONS (4)
  - Incorrect dose administered [Unknown]
  - Drug screen positive [Unknown]
  - Inappropriate schedule of drug administration [Unknown]
  - Application site hypoaesthesia [Unknown]

NARRATIVE: CASE EVENT DATE: 20151002
